FAERS Safety Report 12066954 (Version 1)
Quarter: 2016Q1

REPORT INFORMATION
  Report Type: Spontaneous
  Country: US (occurrence: US)
  Receive Date: 20160210
  Receipt Date: 20160210
  Transmission Date: 20160526
  Serious: No
  Sender: FDA-Public Use
  Company Number: US-ALLERGAN-1526472US

PATIENT
  Age: 45 Year
  Sex: Female
  Weight: 74.83 kg

DRUGS (1)
  1. BOTOX [Suspect]
     Active Substance: ONABOTULINUMTOXINA
     Indication: COMPLEX REGIONAL PAIN SYNDROME
     Dosage: UNK UNK, SINGLE
     Route: 030
     Dates: start: 20150818, end: 20150818

REACTIONS (2)
  - Influenza like illness [Recovered/Resolved]
  - Off label use [Unknown]

NARRATIVE: CASE EVENT DATE: 20150818
